FAERS Safety Report 10038226 (Version 2)
Quarter: 2014Q2

REPORT INFORMATION
  Report Type: Spontaneous
  Country: BR (occurrence: BR)
  Receive Date: 20140326
  Receipt Date: 20140425
  Transmission Date: 20141212
  Serious: Yes (Hospitalization, Other)
  Sender: FDA-Public Use
  Company Number: BR-ASTRAZENECA-2014SE19282

PATIENT
  Age: 59 Year
  Sex: Female

DRUGS (10)
  1. SELOZOK [Suspect]
     Indication: HYPERTENSION
     Route: 048
     Dates: start: 2012, end: 2013
  2. SELOZOK [Suspect]
     Indication: HYPERTENSION
     Route: 048
     Dates: start: 2013
  3. CALCIUM [Suspect]
     Indication: CALCIUM DEFICIENCY
     Route: 048
     Dates: start: 201311
  4. ALPRAZOLAM [Concomitant]
     Route: 048
     Dates: start: 2004
  5. PANTOPRAZOLE [Concomitant]
     Indication: GASTRITIS
     Route: 048
     Dates: start: 201211, end: 201403
  6. ARADOIS [Concomitant]
     Indication: HYPERTENSION
     Dosage: DAILY
     Route: 048
     Dates: start: 2004, end: 2013
  7. ARADOIS [Concomitant]
     Indication: HYPERTENSION
     Dosage: BID
     Route: 048
     Dates: start: 2013
  8. DEPURA [Concomitant]
     Dosage: 12 DROPS/DAY
     Route: 048
     Dates: start: 201311
  9. EUTHYROX [Concomitant]
     Indication: THYROIDECTOMY
     Route: 048
     Dates: start: 201311
  10. PROPIL [Concomitant]
     Indication: THYROIDECTOMY
     Dosage: BID
     Route: 048
     Dates: start: 201311

REACTIONS (10)
  - Gallbladder disorder [Recovered/Resolved]
  - Papillary thyroid cancer [Recovering/Resolving]
  - Muscle spasms [Unknown]
  - Gastritis [Recovered/Resolved]
  - Hypokalaemia [Unknown]
  - Calcium deficiency [Unknown]
  - Blood pressure increased [Unknown]
  - Abdominal pain upper [Recovered/Resolved]
  - Off label use [Not Recovered/Not Resolved]
  - Drug ineffective [Unknown]
